FAERS Safety Report 20993852 (Version 2)
Quarter: 2022Q2

REPORT INFORMATION
  Report Type: Spontaneous
  Country: CN (occurrence: None)
  Receive Date: 20220622
  Receipt Date: 20220629
  Transmission Date: 20220720
  Serious: Yes (Hospitalization, Other)
  Sender: FDA-Public Use
  Company Number: 2022A225075

PATIENT
  Age: 54 Year
  Sex: Male
  Weight: 84 kg

DRUGS (3)
  1. IMFINZI [Suspect]
     Active Substance: DURVALUMAB
     Indication: Non-small cell lung cancer stage III
     Dosage: 860.0MG EVERY CYCLE
     Route: 042
     Dates: start: 20210513, end: 20210602
  2. IMFINZI [Suspect]
     Active Substance: DURVALUMAB
     Indication: Non-small cell lung cancer stage III
     Dosage: TWO VIALS 500MG EACH TIME IN THESE TWO TIMES. EVERY CYCLE
     Route: 042
     Dates: start: 202203
  3. IMFINZI [Suspect]
     Active Substance: DURVALUMAB
     Indication: Non-small cell lung cancer stage III
     Dosage: TWO VIALS 500MG EACH TIME IN THESE TWO TIMES. EVERY CYCLE
     Route: 042
     Dates: start: 202206

REACTIONS (2)
  - Lung disorder [Recovered/Resolved]
  - Pneumonitis [Recovered/Resolved]

NARRATIVE: CASE EVENT DATE: 20210101
